FAERS Safety Report 20617796 (Version 1)
Quarter: 2022Q1

REPORT INFORMATION
  Report Type: Spontaneous
  Country: US (occurrence: None)
  Receive Date: 20220321
  Receipt Date: 20220321
  Transmission Date: 20220424
  Serious: Yes (Life-Threatening, Hospitalization, Other)
  Sender: FDA-Public Use
  Company Number: US-MLMSERVICE-20220308-3408973-1

PATIENT
  Age: 15 Year
  Sex: Male

DRUGS (3)
  1. METHOTREXATE [Suspect]
     Active Substance: METHOTREXATE
     Indication: Osteosarcoma
     Dosage: HIGH DOSE
     Route: 065
  2. ADRIAMYCIN [Concomitant]
     Active Substance: DOXORUBICIN HYDROCHLORIDE
     Indication: Osteosarcoma
     Dosage: UNKNOWN
     Route: 065
  3. CISPLATIN [Concomitant]
     Active Substance: CISPLATIN
     Indication: Osteosarcoma
     Dosage: UNKNOWN
     Route: 065

REACTIONS (8)
  - Respiratory distress [Recovered/Resolved]
  - Demyelination [Unknown]
  - Facial paralysis [Recovered/Resolved]
  - Dysphagia [Recovered/Resolved]
  - Leukoencephalopathy [Unknown]
  - Cerebral disorder [Recovered/Resolved]
  - Muscular weakness [Recovered/Resolved]
  - Neurotoxicity [Recovered/Resolved]
